FAERS Safety Report 8464468-6 (Version None)
Quarter: 2012Q2

REPORT INFORMATION
  Report Type: 
  Country: None (occurrence: None)
  Receive Date: 20120626
  Receipt Date: 20120618
  Transmission Date: 20120825
  Serious: Yes (Hospitalization)
  Sender: FDA-Public Use
  Company Number: FR-UCBSA-059920

PATIENT
  Age: 14 Year
  Sex: Female

DRUGS (1)
  1. VIMPAT [Suspect]
     Dosage: 20 TABLETS OF 200 MG
     Route: 048
     Dates: start: 20120610, end: 20120611

REACTIONS (8)
  - DIPLOPIA [None]
  - SUICIDE ATTEMPT [None]
  - STATUS EPILEPTICUS [None]
  - VOMITING [None]
  - HEADACHE [None]
  - EPILEPSY [None]
  - NAUSEA [None]
  - DIZZINESS [None]
